FAERS Safety Report 6456325-1 (Version None)
Quarter: 2009Q4

REPORT INFORMATION
  Report Type: 
  Country: None (occurrence: None)
  Receive Date: 20091124
  Receipt Date: 20091124
  Transmission Date: 20100525
  Serious: Yes (Other)
  Sender: FDA-Public Use
  Company Number: None

PATIENT
  Age: 58 Year
  Sex: Male
  Weight: 68.0396 kg

DRUGS (2)
  1. AZITHROMYCIN [Suspect]
     Indication: PHARYNGITIS
     Dosage: 500MG ONE PER DAY PO
     Route: 048
     Dates: start: 20091120, end: 20091122
  2. AZITHROMYCIN [Suspect]
     Indication: SINUS DISORDER
     Dosage: 500MG ONE PER DAY PO
     Route: 048
     Dates: start: 20091120, end: 20091122

REACTIONS (2)
  - HEADACHE [None]
  - PRODUCT SUBSTITUTION ISSUE [None]
